FAERS Safety Report 14026490 (Version 1)
Quarter: 2017Q3

REPORT INFORMATION
  Report Type: Report from Study
  Country: CA (occurrence: CA)
  Receive Date: 20170929
  Receipt Date: 20170929
  Transmission Date: 20171128
  Serious: Yes (Other)
  Sender: FDA-Public Use
  Company Number: CA-AMGEN-CANSL2017145622

PATIENT
  Age: 52 Year
  Sex: Female

DRUGS (1)
  1. ENBREL [Suspect]
     Active Substance: ETANERCEPT
     Indication: PSORIATIC ARTHROPATHY
     Dosage: 50 MG, UNK
     Route: 065
     Dates: start: 20140309

REACTIONS (4)
  - Diverticulitis [Recovered/Resolved]
  - Hysterectomy [Unknown]
  - Clostridium difficile infection [Recovered/Resolved]
  - Psoriatic arthropathy [Not Recovered/Not Resolved]

NARRATIVE: CASE EVENT DATE: 2017
